FAERS Safety Report 5753164-1 (Version None)
Quarter: 2008Q2

REPORT INFORMATION
  Report Type: 
  Country: None (occurrence: None)
  Receive Date: 20080530
  Receipt Date: 20080522
  Transmission Date: 20081010
  Serious: Yes (Other)
  Sender: FDA-Public Use
  Company Number: US-JNJFOC-20080306921

PATIENT
  Sex: Female
  Weight: 83.92 kg

DRUGS (5)
  1. ULTRAM [Suspect]
     Indication: ARTHRALGIA
     Route: 048
  2. ULTRAM ER [Suspect]
     Indication: OSTEOARTHRITIS
     Route: 048
  3. DYAZIDE [Suspect]
     Indication: BLOOD PRESSURE
     Route: 048
  4. DYAZIDE [Suspect]
     Indication: FLUID RETENTION
     Dosage: 37.5/25MG
     Route: 048
  5. CLONAZEPAM [Concomitant]
     Indication: ANXIETY
     Route: 048

REACTIONS (8)
  - DIABETES MELLITUS [None]
  - DIZZINESS [None]
  - DRUG INEFFECTIVE [None]
  - ERYTHEMA [None]
  - ILL-DEFINED DISORDER [None]
  - SWELLING FACE [None]
  - VISION BLURRED [None]
  - WITHDRAWAL SYNDROME [None]
